FAERS Safety Report 23084416 (Version 1)
Quarter: 2023Q4

REPORT INFORMATION
  Report Type: Spontaneous
  Country: JP (occurrence: JP)
  Receive Date: 20231019
  Receipt Date: 20231019
  Transmission Date: 20240109
  Serious: Yes (Other)
  Sender: FDA-Public Use
  Company Number: JP-PFIZER INC-202300328448

PATIENT

DRUGS (1)
  1. CORTRIL [Suspect]
     Active Substance: HYDROCORTISONE
     Indication: Adrenal disorder
     Dosage: UNK
     Route: 048

REACTIONS (3)
  - Sepsis [Unknown]
  - Stress [Unknown]
  - Cortisol increased [Unknown]
